FAERS Safety Report 25619289 (Version 1)
Quarter: 2025Q3

REPORT INFORMATION
  Report Type: Report from Study
  Country: US (occurrence: US)
  Receive Date: 20250729
  Receipt Date: 20250729
  Transmission Date: 20251020
  Serious: Yes (Other)
  Sender: ABBVIE
  Company Number: US-ABBVIE-6385751

PATIENT
  Sex: Male

DRUGS (5)
  1. HUMIRA [Suspect]
     Active Substance: ADALIMUMAB
     Indication: Crohn^s disease
     Route: 058
     Dates: start: 20190212
  2. HUMIRA [Suspect]
     Active Substance: ADALIMUMAB
     Route: 058
  3. HYDROXYZINE [Concomitant]
     Active Substance: HYDROXYZINE HYDROCHLORIDE
     Indication: Histamine level increased
     Dates: start: 20240923
  4. FAMOTIDINE [Concomitant]
     Active Substance: FAMOTIDINE
     Indication: Histamine level increased
     Dates: start: 20240923
  5. XYZAL [Concomitant]
     Active Substance: LEVOCETIRIZINE DIHYDROCHLORIDE
     Indication: Histamine level increased
     Dates: start: 20240923

REACTIONS (4)
  - Proctitis [Unknown]
  - Drug level decreased [Unknown]
  - Abdominal pain [Unknown]
  - Rectal ulcer [Unknown]
